FAERS Safety Report 6095201-3 (Version None)
Quarter: 2009Q1

REPORT INFORMATION
  Report Type: 
  Country: None (occurrence: None)
  Receive Date: 20090227
  Receipt Date: 20080211
  Transmission Date: 20090719
  Serious: No
  Sender: FDA-Public Use
  Company Number: A0708754A

PATIENT
  Age: 25 Year
  Sex: Female

DRUGS (5)
  1. LAMICTAL [Suspect]
     Indication: BIPOLAR DISORDER
     Dosage: 25MG PER DAY
     Route: 048
     Dates: start: 20080208
  2. ALBUTEROL [Concomitant]
  3. FLONASE [Concomitant]
  4. SYMBICORT [Concomitant]
  5. CYMBALTA [Concomitant]

REACTIONS (2)
  - DYSPHAGIA [None]
  - TREMOR [None]
